FAERS Safety Report 10215778 (Version 2)
Quarter: 2014Q2

REPORT INFORMATION
  Report Type: Spontaneous
  Country: FR (occurrence: FR)
  Receive Date: 20140604
  Receipt Date: 20140607
  Transmission Date: 20141212
  Serious: Yes (Hospitalization)
  Sender: FDA-Public Use
  Company Number: PHHY2014FR065513

PATIENT
  Age: 66 Year
  Sex: Female

DRUGS (11)
  1. COTAREG [Suspect]
     Dosage: UNK UKN, UNK
     Route: 048
     Dates: end: 20140320
  2. UN-ALFA (ALFACALCIDOL) (1 MICROGRAM) (ALFACALCIDOL) [Interacting]
     Dosage: 1 UG, TID
     Route: 048
     Dates: start: 1984, end: 20140320
  3. UN-ALFA (ALFACALCIDOL) (1 MICROGRAM) (ALFACALCIDOL) [Interacting]
     Dosage: 1 UG, PER DAY
     Route: 048
  4. UN-ALFA (ALFACALCIDOL) (1 MICROGRAM) (ALFACALCIDOL) [Interacting]
     Dosage: 2 UG, DAILY
     Dates: start: 20140418
  5. LEVOTHYROX [Concomitant]
     Dosage: 175 UG, QD
     Route: 048
  6. SECTRAL [Concomitant]
     Dosage: 400 MG, QD
     Route: 048
  7. LESCOL [Concomitant]
     Dosage: 40 MG, QD
  8. KARDEGIC [Concomitant]
     Dosage: 75 MG, QD
     Route: 048
  9. ZANIDIP [Concomitant]
     Dosage: UNK UKN, UNK
     Route: 048
  10. ZANIDIP [Concomitant]
     Dosage: UNK
     Route: 048
  11. VITAMIN D [Concomitant]

REACTIONS (2)
  - Drug interaction [Unknown]
  - Hypercalcaemia [Recovered/Resolved]
